FAERS Safety Report 6565395-1 (Version None)
Quarter: 2010Q1

REPORT INFORMATION
  Report Type: 
  Country: None (occurrence: None)
  Receive Date: 20100201
  Receipt Date: 20100118
  Transmission Date: 20100710
  Serious: Yes (Other)
  Sender: FDA-Public Use
  Company Number: DE-MYLANLABS-2010S1000960

PATIENT
  Age: 60 Year
  Sex: Female
  Weight: 125 kg

DRUGS (2)
  1. DICLOFENAC [Suspect]
     Indication: BACK PAIN
     Route: 030
     Dates: start: 20091225, end: 20091226
  2. DEXAMETHASONE [Concomitant]
     Indication: BACK PAIN
     Route: 030
     Dates: start: 20091225, end: 20091226

REACTIONS (4)
  - BLOOD CREATININE INCREASED [None]
  - GENERALISED OEDEMA [None]
  - PURPURA [None]
  - STEVENS-JOHNSON SYNDROME [None]
